FAERS Safety Report 19046198 (Version 1)
Quarter: 2021Q1

REPORT INFORMATION
  Report Type: Spontaneous
  Country: US (occurrence: US)
  Receive Date: 20210323
  Receipt Date: 20210323
  Transmission Date: 20210420
  Serious: Yes (Other)
  Sender: FDA-Public Use
  Company Number: US-ROCHE-2790557

PATIENT
  Sex: Female

DRUGS (6)
  1. OXALIPLATIN. [Suspect]
     Active Substance: OXALIPLATIN
     Indication: PRODUCT USED FOR UNKNOWN INDICATION
     Route: 065
  2. XELODA [Suspect]
     Active Substance: CAPECITABINE
     Indication: PRODUCT USED FOR UNKNOWN INDICATION
     Route: 065
  3. PREDNISONE. [Suspect]
     Active Substance: PREDNISONE
     Indication: PRODUCT USED FOR UNKNOWN INDICATION
     Route: 065
  4. FOLFOX [Suspect]
     Active Substance: FLUOROURACIL\LEUCOVORIN CALCIUM\OXALIPLATIN
     Indication: PRODUCT USED FOR UNKNOWN INDICATION
     Route: 065
  5. AVASTIN [Suspect]
     Active Substance: BEVACIZUMAB
     Indication: PRODUCT USED FOR UNKNOWN INDICATION
     Route: 065
  6. IRINOTECAN [Suspect]
     Active Substance: IRINOTECAN
     Indication: PRODUCT USED FOR UNKNOWN INDICATION
     Route: 065

REACTIONS (21)
  - Myalgia [Unknown]
  - Amnesia [Unknown]
  - Hypertension [Unknown]
  - Hyperthyroidism [Unknown]
  - Skin fissures [Unknown]
  - Neuropathy peripheral [Unknown]
  - Insomnia [Unknown]
  - Nausea [Unknown]
  - Dehydration [Unknown]
  - Intervertebral disc degeneration [Unknown]
  - Cerebrovascular accident [Unknown]
  - Rib fracture [Unknown]
  - Weight decreased [Unknown]
  - Coordination abnormal [Unknown]
  - Dry skin [Unknown]
  - Fatigue [Unknown]
  - Osteopenia [Unknown]
  - Skin exfoliation [Unknown]
  - Arthralgia [Unknown]
  - Blindness [Unknown]
  - Palpitations [Unknown]
